FAERS Safety Report 7245328-5 (Version None)
Quarter: 2011Q1

REPORT INFORMATION
  Report Type: 
  Country: None (occurrence: None)
  Receive Date: 20110126
  Receipt Date: 20110126
  Transmission Date: 20110831
  Serious: No
  Sender: FDA-Public Use
  Company Number: US-ELI_LILLY_AND_COMPANY-US201008003127

PATIENT
  Age: 45 Year
  Sex: Male

DRUGS (9)
  1. BUTALBITAL COMPOUND [Concomitant]
  2. ACIPHEX [Concomitant]
  3. NADOLOL [Concomitant]
  4. PRAVASTATIN [Concomitant]
  5. CYMBALTA [Suspect]
     Indication: DEPRESSION
     Dosage: 60 MG, DAILY (1/D)
  6. JANUVIA [Concomitant]
  7. METFORMIN [Concomitant]
  8. LACTULOSE [Concomitant]
  9. VIREAD [Concomitant]

REACTIONS (1)
  - NO ADVERSE EVENT [None]
